FAERS Safety Report 24793821 (Version 1)
Quarter: 2024Q4

REPORT INFORMATION
  Report Type: Spontaneous
  Country: CN (occurrence: CN)
  Receive Date: 20241231
  Receipt Date: 20241231
  Transmission Date: 20250114
  Serious: Yes (Life-Threatening, Hospitalization, Other)
  Sender: ALKEM
  Company Number: None

PATIENT
  Age: 32 Year
  Sex: Male
  Weight: 70 kg

DRUGS (5)
  1. TACROLIMUS [Interacting]
     Active Substance: TACROLIMUS
     Indication: Systemic lupus erythematosus
     Dosage: 1 MILLIGRAM, BID
     Route: 048
  2. NIRMATRELVIR [Interacting]
     Active Substance: NIRMATRELVIR
     Indication: COVID-19
     Dosage: 300 MILLIGRAM, BID (PAXLOVID)
     Route: 065
     Dates: start: 20230812, end: 20230816
  3. PHENYTOIN [Interacting]
     Active Substance: PHENYTOIN
     Indication: Immunosuppressant drug level increased
     Dosage: 100 MILLIGRAM, TID
     Route: 048
  4. RITONAVIR [Interacting]
     Active Substance: RITONAVIR
     Indication: COVID-19
     Dosage: 100 MILLIGRAM, BID (PAXLOVID)
     Route: 065
     Dates: start: 20230812, end: 20230816
  5. PREDNISONE [Concomitant]
     Active Substance: PREDNISONE
     Indication: Systemic lupus erythematosus
     Dosage: 5 MILLIGRAM, QD
     Route: 065

REACTIONS (5)
  - Nephropathy toxic [Recovered/Resolved]
  - Immunosuppressant drug level increased [Recovered/Resolved]
  - Neurotoxicity [Recovered/Resolved]
  - Drug level decreased [Unknown]
  - Drug interaction [Unknown]

NARRATIVE: CASE EVENT DATE: 20230801
